FAERS Safety Report 8459803-9 (Version None)
Quarter: 2012Q2

REPORT INFORMATION
  Report Type: 
  Country: None (occurrence: None)
  Receive Date: 20120622
  Receipt Date: 20120614
  Transmission Date: 20120825
  Serious: Yes (Hospitalization)
  Sender: FDA-Public Use
  Company Number: PHHO2012DE008939

PATIENT
  Age: 37 Year
  Sex: Male
  Weight: 90 kg

DRUGS (8)
  1. PROGRAF [Concomitant]
     Indication: PANCREAS TRANSPLANT
     Dosage: 5 MG, BID
     Route: 048
     Dates: start: 20120207, end: 20120227
  2. PENTAGLOBIN [Concomitant]
     Dosage: 15 G, QD
     Route: 042
     Dates: start: 20120228, end: 20120301
  3. FLUCONAZOLE [Concomitant]
     Dosage: 400 MG, QD
     Route: 042
     Dates: start: 20120227
  4. MYCOPHENOLIC ACID [Suspect]
     Indication: PANCREAS TRANSPLANT
     Dosage: 720 MG, BID
     Route: 048
     Dates: start: 20120207, end: 20120227
  5. HYDROCORTISONE [Concomitant]
     Dosage: 200 MG, QD
     Route: 042
     Dates: start: 20120227
  6. PREDNISOLONE [Concomitant]
     Indication: PANCREAS TRANSPLANT
     Dosage: 10 MG, QD
     Route: 048
     Dates: start: 20120207, end: 20120227
  7. VANCOMYCIN [Concomitant]
     Dosage: 20 MG, QD
     Route: 042
     Dates: start: 20120227
  8. IMIPENEM [Concomitant]
     Dosage: 100 MG, BID
     Route: 042
     Dates: start: 20120227

REACTIONS (3)
  - PANCREATITIS [None]
  - BLOOD GLUCOSE INCREASED [None]
  - LACERATION [None]
